FAERS Safety Report 6406850-4 (Version None)
Quarter: 2009Q4

REPORT INFORMATION
  Report Type: 
  Country: None (occurrence: None)
  Receive Date: 20091020
  Receipt Date: 20091013
  Transmission Date: 20100525
  Serious: Yes (Other)
  Sender: FDA-Public Use
  Company Number: US-ROCHE-657359

PATIENT
  Sex: Male
  Weight: 63.5 kg

DRUGS (2)
  1. CAPECITABINE [Suspect]
     Indication: COLORECTAL CANCER
     Dosage: 500 MG 3 TABLETS IN THE AM AND 500 MG 3 TABLETS IN PM
     Route: 048
     Dates: start: 20090801
  2. CAPECITABINE [Suspect]
     Route: 048

REACTIONS (5)
  - BURNING SENSATION [None]
  - DIARRHOEA [None]
  - ERYTHEMA [None]
  - PAIN IN EXTREMITY [None]
  - SCAR [None]
